FAERS Safety Report 4401135-X (Version None)
Quarter: 2004Q3

REPORT INFORMATION
  Report Type: 
  Country: None (occurrence: None)
  Receive Date: 20040907
  Receipt Date: 20031112
  Transmission Date: 20050211
  Serious: No
  Sender: FDA-Public Use
  Company Number: US-BRISTOL-MYERS SQUIBB COMPANY-12434536

PATIENT
  Age: 74 Year
  Sex: Female
  Weight: 58 kg

DRUGS (5)
  1. COUMADIN [Suspect]
     Indication: MYOCARDIAL INFARCTION
     Route: 048
     Dates: start: 20030801
  2. BETAPACE [Concomitant]
  3. CARDURA [Concomitant]
  4. DIOVAN [Concomitant]
  5. ZOCOR [Concomitant]

REACTIONS (2)
  - ALOPECIA [None]
  - HYPOTRICHOSIS [None]
